FAERS Safety Report 10215575 (Version 2)
Quarter: 2014Q2

REPORT INFORMATION
  Report Type: Spontaneous
  Country: AT (occurrence: AT)
  Receive Date: 20140604
  Receipt Date: 20140604
  Transmission Date: 20141212
  Serious: Yes (Hospitalization)
  Sender: FDA-Public Use
  Company Number: AT-AMGEN-AUTSP2014035242

PATIENT
  Age: 64 Year
  Sex: Female
  Weight: 72 kg

DRUGS (7)
  1. PROLIA [Suspect]
     Indication: OSTEOPOROSIS
     Dosage: UNK
     Route: 058
     Dates: start: 20140208
  2. THYREX [Concomitant]
     Indication: HYPOTHYROIDISM
     Dosage: 100 MUG, QD
     Dates: start: 2006
  3. SEROPRAM                           /00582602/ [Concomitant]
     Indication: DEPRESSION
     Dosage: 20 MG, QD
     Dates: start: 2002
  4. SERETIDE DISCUS [Concomitant]
     Indication: ASTHMA
     Dosage: UNK UNK, BID
     Dates: start: 2006
  5. SULTANOL [Concomitant]
     Dosage: UNK UNK, AS NECESSARY
     Route: 045
     Dates: start: 2002
  6. CAL-D-VITA [Concomitant]
     Dosage: 20 UNK
     Dates: start: 2006
  7. MAXI-KALZ VIT D3 [Concomitant]
     Dosage: 1000 MG/800 IU

REACTIONS (1)
  - Type 2 diabetes mellitus [Unknown]
